FAERS Safety Report 4357655-X (Version None)
Quarter: 2004Q2

REPORT INFORMATION
  Report Type: 
  Country: None (occurrence: None)
  Receive Date: 20040513
  Receipt Date: 20040507
  Transmission Date: 20050107
  Serious: Yes (Hospitalization, Other)
  Sender: FDA-Public Use
  Company Number: US-BRISTOL-MYERS SQUIBB COMPANY-12582284

PATIENT
  Age: 72 Year
  Sex: Female
  Weight: 71 kg

DRUGS (2)
  1. ERBITUX [Suspect]
     Indication: COLON CANCER
     Dosage: 1ST INFUSION 400 MG/M2(732 MG)ON 14-APR-04,2ND INFUSION (457 MG)ON 23-APR-04.HELD ON 07-MAY-04
     Route: 042
     Dates: start: 20040429, end: 20040429
  2. BENADRYL [Concomitant]
     Indication: PREMEDICATION
     Dosage: PRE-MEDICATION BEFORE ALL CETUXIMAB INFUSIONS
     Route: 042
     Dates: start: 20040429, end: 20040429

REACTIONS (10)
  - ASTHENIA [None]
  - DIARRHOEA [None]
  - DRUG INEFFECTIVE [None]
  - HAEMATOCRIT ABNORMAL [None]
  - HAEMATOCRIT DECREASED [None]
  - HAEMOGLOBIN ABNORMAL [None]
  - HAEMOGLOBIN DECREASED [None]
  - HYPOCALCAEMIA [None]
  - NAUSEA [None]
  - VOMITING [None]
